FAERS Safety Report 16175500 (Version 3)
Quarter: 2019Q3

REPORT INFORMATION
  Report Type: Report from Study
  Country: None (occurrence: US)
  Receive Date: 20190409
  Receipt Date: 20190730
  Transmission Date: 20191004
  Serious: Yes (Other)
  Sender: FDA-Public Use
  Company Number: US-ABBVIE-19K-163-2734734-00

PATIENT
  Sex: Female

DRUGS (1)
  1. HUMIRA [Suspect]
     Active Substance: ADALIMUMAB
     Indication: HIDRADENITIS
     Route: 058
     Dates: end: 2018

REACTIONS (18)
  - Hot flush [Unknown]
  - Arthritis [Unknown]
  - Gastrointestinal disorder [Unknown]
  - Balance disorder [Unknown]
  - Hidradenitis [Recovered/Resolved]
  - Feeling cold [Unknown]
  - Sinus disorder [Unknown]
  - Gastrooesophageal reflux disease [Unknown]
  - Fatigue [Unknown]
  - Hidradenitis [Unknown]
  - Abdominal mass [Recovered/Resolved]
  - Spinal operation [Recovering/Resolving]
  - Weight increased [Unknown]
  - Fibromyalgia [Not Recovered/Not Resolved]
  - Drug ineffective [Recovering/Resolving]
  - Otorrhoea [Unknown]
  - Diabetes mellitus [Not Recovered/Not Resolved]
  - Gait inability [Unknown]

NARRATIVE: CASE EVENT DATE: 2018
